FAERS Safety Report 7498647 (Version 4)
Quarter: 2013Q2

REPORT INFORMATION
  Report Type: Report from Study
  Country: NZ (occurrence: NZ)
  Receive Date: 20100723
  Receipt Date: 20130620
  Transmission Date: 20140414
  Serious: Yes (Hospitalization, Other)
  Sender: FDA-Public Use
  Company Number: NZ-ABBOTT-10P-118-0647898-03

PATIENT
  Age: 35 Year
  Sex: Female
  Weight: 46 kg

DRUGS (4)
  1. HUMIRA [Suspect]
     Indication: CROHN^S DISEASE
     Route: 058
     Dates: start: 20090224, end: 20090702
  2. PARACETAMOL [Concomitant]
     Indication: PROCEDURAL PAIN
     Dates: start: 20090815
  3. PARACETAMOL [Concomitant]
     Indication: PROCEDURAL PAIN
  4. CODEINE [Concomitant]
     Indication: PROCEDURAL PAIN
     Dosage: 30-60MG AS NEEDED
     Dates: start: 20090818

REACTIONS (3)
  - Fistula [Recovered/Resolved]
  - Fistula discharge [Recovered/Resolved]
  - Impaired healing [Recovered/Resolved]
